FAERS Safety Report 11617365 (Version 1)
Quarter: 2015Q4

REPORT INFORMATION
  Report Type: Report from Study
  Country: US (occurrence: US)
  Receive Date: 20151009
  Receipt Date: 20151009
  Transmission Date: 20160304
  Serious: No
  Sender: FDA-Public Use
  Company Number: PHEH2015US017414

PATIENT
  Sex: Female
  Weight: 65.77 kg

DRUGS (1)
  1. GILENYA [Suspect]
     Active Substance: FINGOLIMOD HYDROCHLORIDE
     Indication: MULTIPLE SCLEROSIS
     Dosage: 0.5 MG, QD
     Route: 048
     Dates: end: 2014

REACTIONS (8)
  - Sensory loss [Unknown]
  - Gait disturbance [Unknown]
  - Cognitive disorder [Unknown]
  - Intervertebral disc protrusion [Unknown]
  - Intervertebral disc disorder [Unknown]
  - Fatigue [Unknown]
  - Monoparesis [Unknown]
  - White matter lesion [Unknown]
